FAERS Safety Report 8093159-9 (Version None)
Quarter: 2012Q1

REPORT INFORMATION
  Report Type: 
  Country: None (occurrence: None)
  Receive Date: 20120128
  Receipt Date: 20111009
  Transmission Date: 20120608
  Serious: No
  Sender: FDA-Public Use
  Company Number: US-ABBOTT-11P-163-0845632-00

PATIENT
  Sex: Male

DRUGS (5)
  1. HUMIRA [Suspect]
     Indication: PSORIASIS
     Dates: start: 20110630
  2. LOSARTAN POTASSIUM [Concomitant]
     Indication: HYPERTENSION
     Dosage: DAILY
     Route: 048
  3. HYDROCHLOROTHIAZIDE [Concomitant]
     Indication: HYPERTENSION
     Dosage: DAILY
     Route: 048
  4. METFORMIN HCL [Concomitant]
     Indication: DIABETES MELLITUS
     Dosage: DAILY
     Route: 048
  5. SYMBICORT [Concomitant]
     Indication: ASTHMA
     Dosage: BID

REACTIONS (7)
  - PSORIASIS [None]
  - SKIN INFECTION [None]
  - SCRATCH [None]
  - PRURITUS [None]
  - PRURITUS GENERALISED [None]
  - RASH [None]
  - GENERALISED ERYTHEMA [None]
